FAERS Safety Report 10086463 (Version 2)
Quarter: 2014Q2

REPORT INFORMATION
  Report Type: Report from Study
  Country: CA (occurrence: CA)
  Receive Date: 20140418
  Receipt Date: 20140418
  Transmission Date: 20141212
  Serious: Yes (Other)
  Sender: FDA-Public Use
  Company Number: CA-SA-2014SA037950

PATIENT
  Age: 50 Year
  Sex: Female

DRUGS (2)
  1. AUBAGIO [Suspect]
     Indication: RELAPSING-REMITTING MULTIPLE SCLEROSIS
     Route: 048
     Dates: start: 20140205
  2. CYMBALTA [Concomitant]
     Indication: PAIN
     Route: 048

REACTIONS (2)
  - Diabetes mellitus [Not Recovered/Not Resolved]
  - Blood glucose increased [Not Recovered/Not Resolved]
